FAERS Safety Report 13704497 (Version 1)
Quarter: 2017Q2

REPORT INFORMATION
  Report Type: Spontaneous
  Country: US (occurrence: US)
  Receive Date: 20170629
  Receipt Date: 20170629
  Transmission Date: 20170830
  Serious: No
  Sender: FDA-Public Use
  Company Number: None

PATIENT
  Age: 51 Year
  Sex: Male

DRUGS (1)
  1. FLUOCINONIDE CREAM [Suspect]
     Active Substance: FLUOCINONIDE
     Route: 061
     Dates: start: 20170426, end: 20170629

REACTIONS (3)
  - Drug effect decreased [None]
  - Product substitution issue [None]
  - Pruritus [None]
